FAERS Safety Report 5076941-1 (Version None)
Quarter: 2006Q3

REPORT INFORMATION
  Report Type: 
  Country: None (occurrence: None)
  Receive Date: 20060810
  Receipt Date: 20060731
  Transmission Date: 20061208
  Serious: Yes (Hospitalization)
  Sender: FDA-Public Use
  Company Number: FR-SANOFI-SYNTHELABO-A02200601946

PATIENT
  Age: 78 Year
  Sex: Female

DRUGS (6)
  1. NEORECORMON [Suspect]
     Indication: ANAEMIA
     Dosage: 4000 IU
     Route: 058
  2. OMEPRAZOLE [Suspect]
     Indication: GASTRIC ULCER
     Route: 048
  3. MODOPAR [Suspect]
     Indication: PARKINSON'S DISEASE
     Route: 048
  4. DEPAKENE [Suspect]
     Indication: EPILEPSY
     Route: 048
  5. CORDARONE [Suspect]
     Indication: DRUG USE FOR UNKNOWN INDICATION
     Route: 048
  6. PLAVIX [Suspect]
     Indication: CEREBROVASCULAR ACCIDENT
     Route: 048

REACTIONS (1)
  - HYPOTHYROIDISM [None]
